FAERS Safety Report 9515726 (Version 1)
Quarter: 2013Q3

REPORT INFORMATION
  Report Type: Spontaneous
  Country: DE (occurrence: DE)
  Receive Date: 20130911
  Receipt Date: 20130911
  Transmission Date: 20140515
  Serious: Yes (Other)
  Sender: FDA-Public Use
  Company Number: DE-PFIZER INC-2013256320

PATIENT
  Age: 9 Week
  Sex: Male

DRUGS (4)
  1. CIPROFLOXACIN [Suspect]
     Indication: WOUND
     Dosage: UNK
     Route: 063
  2. IBUPROFEN [Suspect]
     Indication: HEADACHE
     Dosage: 600 MG, 4X/DAY
     Route: 063
  3. PARACETAMOL [Suspect]
     Indication: HEADACHE
     Dosage: 4 G, 1X/DAY
     Route: 063
  4. THEOPHYLLINE [Suspect]
     Indication: HEADACHE
     Dosage: 125 MG, 1X/DAY
     Route: 063

REACTIONS (2)
  - Exposure during breast feeding [Unknown]
  - Hepatobiliary disease [Unknown]
